FAERS Safety Report 8271445-7 (Version None)
Quarter: 2012Q2

REPORT INFORMATION
  Report Type: 
  Country: None (occurrence: None)
  Receive Date: 20120410
  Receipt Date: 20120321
  Transmission Date: 20120825
  Serious: No
  Sender: FDA-Public Use
  Company Number: US-NOVEN-12US004349

PATIENT
  Sex: Female

DRUGS (2)
  1. FENTANYL CITRATE [Suspect]
     Indication: OSTEOARTHRITIS
  2. FENTANYL CITRATE [Suspect]
     Indication: RHEUMATOID ARTHRITIS
     Dosage: 25 UG/HR, EVERY 72 HOURS

REACTIONS (2)
  - INADEQUATE ANALGESIA [None]
  - PARAESTHESIA [None]
